FAERS Safety Report 6156312-7 (Version None)
Quarter: 2009Q2

REPORT INFORMATION
  Report Type: 
  Country: None (occurrence: None)
  Receive Date: 20090415
  Receipt Date: 20090410
  Transmission Date: 20091009
  Serious: Yes (Other)
  Sender: FDA-Public Use
  Company Number: US-JNJCH-2009010205

PATIENT
  Age: 65 Year
  Sex: Female
  Weight: 49.9 kg

DRUGS (1)
  1. ZYRTEC [Suspect]
     Indication: HYPERSENSITIVITY
     Dosage: TEXT:1 PILL EVERY 24 HOURS
     Route: 048
     Dates: start: 20090408, end: 20090410

REACTIONS (4)
  - DEPRESSION [None]
  - FEELING ABNORMAL [None]
  - SOMNOLENCE [None]
  - WRONG DRUG ADMINISTERED [None]
